FAERS Safety Report 4967348-3 (Version None)
Quarter: 2006Q2

REPORT INFORMATION
  Report Type: 
  Country: None (occurrence: None)
  Receive Date: 20060410
  Receipt Date: 20060329
  Transmission Date: 20061013
  Serious: Yes (Other)
  Sender: FDA-Public Use
  Company Number: DE-JNJFOC-20060307351

PATIENT

DRUGS (2)
  1. RISPERDAL [Suspect]
     Indication: DRUG USE FOR UNKNOWN INDICATION
     Route: 048
  2. L-THYROXIN [Interacting]
     Indication: HYPOTHYROIDISM
     Route: 048

REACTIONS (4)
  - AGGRESSION [None]
  - DEPRESSION [None]
  - DRUG INTERACTION [None]
  - HYPOTHYROIDISM [None]
